FAERS Safety Report 16052229 (Version 1)
Quarter: 2019Q1

REPORT INFORMATION
  Report Type: Report from Study
  Country: CA (occurrence: CA)
  Receive Date: 20190308
  Receipt Date: 20190308
  Transmission Date: 20190418
  Serious: Yes (Death, Hospitalization)
  Sender: FDA-Public Use
  Company Number: CA-TAIHO ONCOLOGY  INC-EU-2019-00449

PATIENT
  Age: 62 Year
  Sex: Male
  Weight: 106.1 kg

DRUGS (2)
  1. LONSURF [Suspect]
     Active Substance: TIPIRACIL HYDROCHLORIDE\TRIFLURIDINE
     Dosage: CURRENT CYCLE 4 INTERRUPTED ON AN UNSPECIFIED DATE
     Route: 048
     Dates: start: 20181121
  2. LONSURF [Suspect]
     Active Substance: TIPIRACIL HYDROCHLORIDE\TRIFLURIDINE
     Indication: COLORECTAL CANCER METASTATIC
     Dosage: CYCLE 1-3
     Route: 048
     Dates: start: 20180813, end: 201811

REACTIONS (6)
  - Thrombocytopenia [Unknown]
  - Dizziness [Unknown]
  - Pneumonia [Fatal]
  - Neutropenia [Unknown]
  - Nausea [Unknown]
  - Disease progression [Unknown]

NARRATIVE: CASE EVENT DATE: 2018
